FAERS Safety Report 23688852 (Version 1)
Quarter: 2024Q1

REPORT INFORMATION
  Report Type: Report from Study
  Country: US (occurrence: US)
  Receive Date: 20240329
  Receipt Date: 20240329
  Transmission Date: 20240410
  Serious: Yes (Hospitalization)
  Sender: FDA-Public Use
  Company Number: US-GILEAD-2024-0666949

PATIENT
  Sex: Male

DRUGS (1)
  1. AZTREONAM LYSINE [Suspect]
     Active Substance: AZTREONAM LYSINE
     Indication: Pseudomonas infection
     Dosage: 75 MG, TID (INHALE 1 VIAL VIAB ALTERA NEBULIZER, 28 DAYS ON 28 DAYS OFF.)
     Route: 055

REACTIONS (2)
  - Infection [Unknown]
  - Off label use [Not Recovered/Not Resolved]
